FAERS Safety Report 4591556-7 (Version None)
Quarter: 2005Q1

REPORT INFORMATION
  Report Type: 
  Country: None (occurrence: None)
  Receive Date: 20050222
  Receipt Date: 20050104
  Transmission Date: 20050727
  Serious: Yes (Congenital Anomaly, Other)
  Sender: FDA-Public Use
  Company Number: 2004114335

PATIENT
  Sex: Male

DRUGS (1)
  1. CELECOXIB (CELECOXIB) [Suspect]
     Indication: PROSTATITIS
     Dosage: UNKNOWN (200 MG, UNKNOWN)
     Route: 065
     Dates: start: 20020101

REACTIONS (1)
  - POLYCYTHAEMIA VERA [None]
